FAERS Safety Report 17208859 (Version 2)
Quarter: 2019Q4

REPORT INFORMATION
  Report Type: Spontaneous
  Country: US (occurrence: US)
  Receive Date: 20191227
  Receipt Date: 20191227
  Transmission Date: 20200122
  Serious: No
  Sender: FDA-Public Use
  Company Number: US-INDIVIOR US-INDV-121724-2019

PATIENT
  Sex: Male

DRUGS (2)
  1. SUBLOCADE [Suspect]
     Active Substance: BUPRENORPHINE
     Indication: DRUG DEPENDENCE
     Dosage: 300MG, QMO
     Route: 058
     Dates: start: 20190822
  2. BUPRENORPHINE/NALOXONE 8 MG FILM [Suspect]
     Active Substance: BUPRENORPHINE\NALOXONE
     Indication: DRUG DEPENDENCE
     Dosage: 16 TO 24MG PER DAY (SPLITS TAKING ONE OR TWO IN THE MORNING AND ONE IN THE EVENING)
     Route: 065
     Dates: start: 2019

REACTIONS (5)
  - Drug dependence [Unknown]
  - Drug abuse [Recovered/Resolved]
  - Injection site reaction [Unknown]
  - Therapeutic product effect incomplete [Unknown]
  - Inappropriate schedule of product administration [Not Recovered/Not Resolved]

NARRATIVE: CASE EVENT DATE: 2019
